FAERS Safety Report 9808934 (Version 1)
Quarter: 2014Q1

REPORT INFORMATION
  Report Type: Spontaneous
  Country: DE (occurrence: DE)
  Receive Date: 20140110
  Receipt Date: 20140110
  Transmission Date: 20141002
  Serious: Yes (Other)
  Sender: FDA-Public Use
  Company Number: DE-GLAXOSMITHKLINE-D0081760A

PATIENT
  Age: 47 Year
  Sex: Male
  Weight: 85 kg

DRUGS (9)
  1. BENLYSTA [Suspect]
     Indication: SYSTEMIC LUPUS ERYTHEMATOSUS
     Dosage: 800MG AS DIRECTED
     Route: 042
     Dates: start: 20131025, end: 20131025
  2. BENLYSTA [Concomitant]
     Indication: SYSTEMIC LUPUS ERYTHEMATOSUS
     Route: 042
     Dates: start: 20120213
  3. TAVEGIL [Concomitant]
     Route: 065
  4. METHOTREXATE [Concomitant]
     Indication: SYSTEMIC LUPUS ERYTHEMATOSUS
     Dosage: 15MG WEEKLY
     Route: 058
     Dates: start: 201107
  5. HYDROXYCHLOROQUINE [Concomitant]
     Indication: SYSTEMIC LUPUS ERYTHEMATOSUS
     Dosage: 400MG PER DAY
     Route: 048
  6. PREDNISOLON [Concomitant]
     Indication: SYSTEMIC LUPUS ERYTHEMATOSUS
     Dosage: 25MG PER DAY
     Route: 065
     Dates: start: 2013
  7. VITAMIN D3 [Concomitant]
     Route: 065
  8. TILIDIN [Concomitant]
     Route: 065
  9. PANTOPRAZOL [Concomitant]
     Route: 065

REACTIONS (7)
  - Angioedema [Recovered/Resolved]
  - Local swelling [Recovered/Resolved]
  - Local swelling [Recovered/Resolved]
  - Fatigue [Recovered/Resolved]
  - Fatigue [Recovered/Resolved]
  - Face oedema [Recovered/Resolved]
  - Laryngeal oedema [Recovered/Resolved]
